FAERS Safety Report 8433445-3 (Version None)
Quarter: 2012Q2

REPORT INFORMATION
  Report Type: 
  Country: None (occurrence: None)
  Receive Date: 20120613
  Receipt Date: 20120604
  Transmission Date: 20120825
  Serious: Yes (Other)
  Sender: FDA-Public Use
  Company Number: BR-ASTRAZENECA-2012SE37228

PATIENT
  Age: 64 Year
  Sex: Male
  Weight: 68 kg

DRUGS (7)
  1. METOPROLOL SUCCINATE [Suspect]
     Indication: ARRHYTHMIA
     Route: 048
     Dates: start: 20120301, end: 20120501
  2. BENICAR [Concomitant]
     Indication: HYPERTENSION
     Route: 048
     Dates: start: 20040101
  3. METOPROLOL SUCCINATE [Suspect]
     Route: 048
     Dates: start: 20120501
  4. ATACAND HCT [Suspect]
     Indication: HYPERTENSION
     Dosage: 16 + 2.5 MG, 1 CANDASARTAN TAB BY MORNING/1 FELODEPINE TAB AT NIGHT
     Route: 048
  5. CRESTOR [Suspect]
     Route: 048
  6. CRESTOR [Suspect]
     Indication: BLOOD CHOLESTEROL INCREASED
     Route: 048
     Dates: start: 20040101, end: 20120501
  7. METOPROLOL SUCCINATE [Suspect]
     Route: 048
     Dates: start: 20120501, end: 20120501

REACTIONS (3)
  - DRUG INEFFECTIVE [None]
  - BLOOD PRESSURE INCREASED [None]
  - DRUG PRESCRIBING ERROR [None]
